FAERS Safety Report 25961088 (Version 1)
Quarter: 2025Q4

REPORT INFORMATION
  Report Type: Spontaneous
  Country: US (occurrence: US)
  Receive Date: 20251027
  Receipt Date: 20251027
  Transmission Date: 20260117
  Serious: Yes (Other)
  Sender: SUNOVION
  Company Number: US-SUMITOMO PHARMA SWITZERLAND GMBH-2025SPA013752

PATIENT
  Age: 59 Year
  Sex: Female
  Weight: 65.306 kg

DRUGS (8)
  1. GEMTESA [Suspect]
     Active Substance: VIBEGRON
     Indication: Incontinence
     Dosage: 75 MG, QD
     Route: 048
  2. GEMTESA [Suspect]
     Active Substance: VIBEGRON
     Indication: Bladder disorder
  3. GEMTESA [Suspect]
     Active Substance: VIBEGRON
     Indication: Hypertonic bladder
  4. LASIX [Suspect]
     Active Substance: FUROSEMIDE
     Indication: Product used for unknown indication
     Dosage: UNK
  5. RITALIN [Concomitant]
     Active Substance: METHYLPHENIDATE HYDROCHLORIDE
     Indication: Narcolepsy
     Dosage: 20 MG, TID
  6. TRAZODONE [Concomitant]
     Active Substance: TRAZODONE HYDROCHLORIDE
     Indication: Sleep disorder
     Dosage: 50 MG
  7. METOPROLOL TARTRATE [Concomitant]
     Active Substance: METOPROLOL TARTRATE
     Dosage: UNK
  8. LISINOPRIL [Concomitant]
     Active Substance: LISINOPRIL
     Dosage: UNK

REACTIONS (26)
  - Diverticulum intestinal [Unknown]
  - Glaucoma [Unknown]
  - Cataract [Unknown]
  - Catheterisation cardiac [Unknown]
  - Loss of consciousness [Unknown]
  - Cardiac dysfunction [Unknown]
  - Bladder operation [Unknown]
  - Eye operation [Unknown]
  - Sinus tachycardia [Unknown]
  - Tooth extraction [Unknown]
  - Tooth infection [Unknown]
  - Blood pressure fluctuation [Unknown]
  - Eye disorder [Unknown]
  - Weight decreased [Unknown]
  - Arthritis [Unknown]
  - Scar [Unknown]
  - Pain [Unknown]
  - Pollakiuria [Unknown]
  - Fall [Unknown]
  - Urinary tract infection bacterial [Unknown]
  - Tooth abscess [Unknown]
  - Intracardiac pressure increased [Unknown]
  - Fluid retention [Unknown]
  - Drug interaction [Unknown]
  - Product use issue [Unknown]
  - Inappropriate schedule of product administration [Unknown]

NARRATIVE: CASE EVENT DATE: 20240404
